FAERS Safety Report 6045946-6 (Version None)
Quarter: 2009Q1

REPORT INFORMATION
  Report Type: 
  Country: None (occurrence: None)
  Receive Date: 20090121
  Receipt Date: 20090115
  Transmission Date: 20090719
  Serious: Yes (Life-Threatening)
  Sender: FDA-Public Use
  Company Number: DE-MERCK-0705DEU00035

PATIENT
  Age: 69 Year
  Sex: Female

DRUGS (6)
  1. CANCIDAS [Suspect]
     Indication: PNEUMONIA
     Route: 042
  2. PIPERACILLIN [Concomitant]
     Indication: PNEUMONIA
     Route: 065
  3. COMBACTAM [Concomitant]
     Indication: PNEUMONIA
     Route: 065
  4. TEICOPLANIN [Concomitant]
     Indication: PNEUMONIA
     Route: 065
  5. CYCLOSPORINE [Concomitant]
     Indication: IMMUNOSUPPRESSION
     Route: 065
  6. MYCOPHENOLATE MOFETIL [Concomitant]
     Indication: IMMUNOSUPPRESSION
     Route: 065

REACTIONS (1)
  - ENCEPHALITIS FUNGAL [None]
